FAERS Safety Report 16252208 (Version 1)
Quarter: 2019Q2

REPORT INFORMATION
  Report Type: Spontaneous
  Country: PL (occurrence: PL)
  Receive Date: 20190429
  Receipt Date: 20190429
  Transmission Date: 20190711
  Serious: Yes (Other)
  Sender: FDA-Public Use
  Company Number: PL-TEVA-2019-PL-1042165

PATIENT
  Age: 72 Year
  Sex: Female
  Weight: 90 kg

DRUGS (1)
  1. PACLITAXEL. [Suspect]
     Active Substance: PACLITAXEL
     Indication: OVARIAN CANCER
     Route: 042
     Dates: start: 20160818, end: 20160818

REACTIONS (2)
  - Polyneuropathy [Unknown]
  - Anaemia [Unknown]

NARRATIVE: CASE EVENT DATE: 20160908
